FAERS Safety Report 25902883 (Version 1)
Quarter: 2025Q4

REPORT INFORMATION
  Report Type: Other
  Country: GB (occurrence: GB)
  Receive Date: 20251009
  Receipt Date: 20251009
  Transmission Date: 20260118
  Serious: Yes (Life-Threatening, Hospitalization)
  Sender: AIR PRODUCTS
  Company Number: GB-Air Products and Chemicals-2186257

PATIENT
  Sex: Male

DRUGS (1)
  1. OXYGEN [Suspect]
     Active Substance: OXYGEN
     Indication: Neonatal respiratory acidosis

REACTIONS (1)
  - Cardiogenic shock [Recovered/Resolved]
